FAERS Safety Report 6861887-6 (Version None)
Quarter: 2010Q3

REPORT INFORMATION
  Report Type: 
  Country: None (occurrence: None)
  Receive Date: 20100721
  Receipt Date: 20100706
  Transmission Date: 20110219
  Serious: Yes (Other)
  Sender: FDA-Public Use
  Company Number: JP-MYLANLABS-2010S1011952

PATIENT
  Age: 15 Day
  Sex: Female

DRUGS (1)
  1. LEVOTHYROXINE SODIUM [Suspect]
     Indication: HYPOTHYROIDISM
     Route: 065

REACTIONS (6)
  - BLOOD CORTISOL DECREASED [None]
  - BLOOD SODIUM DECREASED [None]
  - CIRCULATORY FAILURE NEONATAL [None]
  - DEAFNESS [None]
  - LUNG DISORDER [None]
  - OEDEMA [None]
